FAERS Safety Report 16902701 (Version 2)
Quarter: 2019Q4

REPORT INFORMATION
  Report Type: Spontaneous
  Country: FR (occurrence: FR)
  Receive Date: 20191010
  Receipt Date: 20191219
  Transmission Date: 20200122
  Serious: Yes (Hospitalization)
  Sender: FDA-Public Use
  Company Number: FR-AUROBINDO-AUR-APL-2019-065333

PATIENT
  Age: 13 Year
  Sex: Female

DRUGS (1)
  1. PARACETAMOL [Suspect]
     Active Substance: ACETAMINOPHEN
     Indication: PRODUCT USED FOR UNKNOWN INDICATION
     Dosage: 25 GRAM, 1 TOTAL (25 G, ONCE/SINGLE)
     Route: 048
     Dates: start: 20190901

REACTIONS (4)
  - Intentional overdose [Recovered/Resolved]
  - Prothrombin time prolonged [Recovered/Resolved]
  - Hepatomegaly [Recovered/Resolved]
  - Vomiting [Recovered/Resolved]

NARRATIVE: CASE EVENT DATE: 20190901
